FAERS Safety Report 8287427-5 (Version None)
Quarter: 2012Q2

REPORT INFORMATION
  Report Type: 
  Country: None (occurrence: None)
  Receive Date: 20120410
  Receipt Date: 20120410
  Transmission Date: 20120825
  Serious: No
  Sender: FDA-Public Use
  Company Number: None

PATIENT
  Sex: Female
  Weight: 58.9676 kg

DRUGS (2)
  1. PRADAXA [Suspect]
     Indication: HEART RATE IRREGULAR
     Dosage: 150 MG 2X DAILY BY MOUTH
     Route: 048
  2. PRADAXA [Suspect]
     Indication: HEART RATE IRREGULAR
     Dosage: 75 MG 2 X DAILY BY MOUTH
     Route: 048

REACTIONS (5)
  - SYNCOPE [None]
  - DIZZINESS [None]
  - RASH MACULAR [None]
  - ALOPECIA [None]
  - HYPOTENSION [None]
